FAERS Safety Report 6410439-0 (Version None)
Quarter: 2009Q4

REPORT INFORMATION
  Report Type: 
  Country: None (occurrence: None)
  Receive Date: 20091022
  Receipt Date: 20091016
  Transmission Date: 20100525
  Serious: Yes (Hospitalization)
  Sender: FDA-Public Use
  Company Number: JP-BAYER-200912705BYL

PATIENT
  Age: 77 Year
  Sex: Male

DRUGS (3)
  1. NEXAVAR [Suspect]
     Indication: HEPATIC NEOPLASM MALIGNANT
     Dosage: TOTAL DAILY DOSE: 800 MG  UNIT DOSE: 200 MG
     Route: 048
     Dates: start: 20090713, end: 20090727
  2. MAJOR TRANQUILIZER [Concomitant]
     Route: 065
  3. GLYCYRRHIZIN PRODUCT [Concomitant]
     Route: 042

REACTIONS (2)
  - PYREXIA [None]
  - RHABDOMYOLYSIS [None]
